APPROVED DRUG PRODUCT: DOCETAXEL
Active Ingredient: DOCETAXEL
Strength: 140MG/7ML (20MG/ML)
Dosage Form/Route: INJECTABLE;INJECTION
Application: N203551 | Product #003
Applicant: ACTAVIS LLC AN INDIRECT WHOLLY OWNED SUB OF TEVA PHARMACEUTICALS USA INC
Approved: Apr 12, 2013 | RLD: No | RS: No | Type: RX